FAERS Safety Report 22624287 (Version 1)
Quarter: 2023Q2

REPORT INFORMATION
  Report Type: Spontaneous
  Country: US (occurrence: US)
  Receive Date: 20230621
  Receipt Date: 20230621
  Transmission Date: 20230721
  Serious: Yes (Other)
  Sender: FDA-Public Use
  Company Number: US-GLAXOSMITHKLINE-US2023AMR084785

PATIENT

DRUGS (6)
  1. NARATRIPTAN [Suspect]
     Active Substance: NARATRIPTAN HYDROCHLORIDE
     Indication: Migraine
     Dosage: 2 MG, Z (PRN)
     Route: 048
     Dates: start: 202107
  2. FIORICET [Suspect]
     Active Substance: ACETAMINOPHEN\BUTALBITAL\CAFFEINE
     Indication: Migraine
     Dosage: 1 DF, PRN
     Route: 048
     Dates: start: 20220511
  3. CEFIXIME [Suspect]
     Active Substance: CEFIXIME
     Indication: Migraine
     Dosage: UNK, (5-10 MG PRN)
     Route: 048
     Dates: start: 20220511
  4. TYLENOL [Suspect]
     Active Substance: ACETAMINOPHEN
     Indication: Migraine
     Dosage: UNK, 500-1000 MG PRN
     Route: 048
  5. MAGNESIUM [Suspect]
     Active Substance: MAGNESIUM
     Indication: Migraine
     Dosage: 325 MG, PRN
     Route: 048
     Dates: start: 20220425
  6. CYCLOBENZAPRINE [Suspect]
     Active Substance: CYCLOBENZAPRINE
     Indication: Migraine
     Dosage: UNK, 5-10 MG PRN
     Route: 048
     Dates: start: 20220420

REACTIONS (3)
  - Plagiocephaly [Not Recovered/Not Resolved]
  - Feeding disorder [Unknown]
  - Exposure during pregnancy [Unknown]

NARRATIVE: CASE EVENT DATE: 20230224
